FAERS Safety Report 9530269 (Version 1)
Quarter: 2013Q3

REPORT INFORMATION
  Report Type: Spontaneous
  Country: US (occurrence: US)
  Receive Date: 20130917
  Receipt Date: 20130917
  Transmission Date: 20140515
  Serious: Yes (Other)
  Sender: FDA-Public Use
  Company Number: US-RB-058444-13

PATIENT
  Sex: 0

DRUGS (6)
  1. SUBUTEX [Suspect]
     Indication: DRUG DEPENDENCE
     Route: 064
     Dates: start: 20120914, end: 201301
  2. METHADONE [Suspect]
     Indication: DRUG DEPENDENCE
     Dosage: DOSING DETAILS UNKNOWN
     Route: 064
     Dates: start: 201301, end: 2013
  3. SUBOXONE FILM [Suspect]
     Indication: DRUG DEPENDENCE
     Route: 064
     Dates: start: 20120914, end: 201210
  4. PERCOCET [Suspect]
     Indication: DRUG DEPENDENCE
     Dosage: DOSING INFORMATION UNKNOWN
     Route: 064
     Dates: start: 20130109, end: 201301
  5. XANAX [Suspect]
     Indication: ANXIETY
     Dosage: 8-10 MG DAILY
     Route: 064
     Dates: start: 20120914, end: 20130111
  6. KLONOPIN [Suspect]
     Indication: ANXIETY
     Route: 064
     Dates: start: 20130116, end: 2013

REACTIONS (2)
  - Foetal exposure during pregnancy [Recovered/Resolved]
  - Respiratory disorder neonatal [Recovered/Resolved]
